FAERS Safety Report 5940225-7 (Version None)
Quarter: 2008Q4

REPORT INFORMATION
  Report Type: 
  Country: None (occurrence: None)
  Receive Date: 20081104
  Receipt Date: 20081022
  Transmission Date: 20090506
  Serious: Yes (Hospitalization, Other)
  Sender: FDA-Public Use
  Company Number: US-ELI_LILLY_AND_COMPANY-US200809001128

PATIENT
  Age: 76 Year
  Sex: Female
  Weight: 64 kg

DRUGS (5)
  1. ALIMTA [Suspect]
     Indication: NON-SMALL CELL LUNG CANCER
     Dosage: 500 MG/M2, UNK
     Dates: start: 20080818, end: 20080101
  2. VITAMIN B-12 [Concomitant]
     Dosage: 1000 UG, EVERY 9 WEEKS
     Route: 030
     Dates: start: 20080812
  3. FOLIC ACID [Concomitant]
     Dosage: 400 UG, DAILY (1/D)
     Route: 048
     Dates: start: 20080812
  4. DEXAMETHASONE 0.5MG TAB [Concomitant]
     Dosage: 4 MG, 2/D
     Route: 048
     Dates: start: 20080817
  5. TARCEVA [Concomitant]
     Indication: NON-SMALL CELL LUNG CANCER
     Dates: start: 20080401, end: 20080801

REACTIONS (8)
  - DYSPNOEA [None]
  - LUNG INFILTRATION [None]
  - OXYGEN CONSUMPTION INCREASED [None]
  - PLEURITIC PAIN [None]
  - PNEUMONIA [None]
  - PYREXIA [None]
  - SPUTUM ABNORMAL [None]
  - WHITE BLOOD CELL COUNT INCREASED [None]
